FAERS Safety Report 8953419 (Version 3)
Quarter: 2013Q1

REPORT INFORMATION
  Report Type: Spontaneous
  Country: JP (occurrence: JP)
  Receive Date: 20121206
  Receipt Date: 20130228
  Transmission Date: 20140127
  Serious: Yes (Other)
  Sender: FDA-Public Use
  Company Number: JP-JNJFOC-20121200417

PATIENT
  Age: 8 Decade
  Sex: Male

DRUGS (3)
  1. ONEDURO [Suspect]
     Indication: CANCER PAIN
     Dosage: EQUIVALENT TO DAILY ABSORBED DOSE OF 0.3 MG
     Route: 062
  2. ARIPIPRAZOLE [Concomitant]
     Indication: DEPRESSION
     Route: 048
  3. ARIPIPRAZOLE [Concomitant]
     Indication: DEPRESSION
     Route: 048

REACTIONS (1)
  - Delirium [Recovered/Resolved]
